FAERS Safety Report 9218011 (Version 2)
Quarter: 2013Q2

REPORT INFORMATION
  Report Type: Spontaneous
  Country: BR (occurrence: BR)
  Receive Date: 20130408
  Receipt Date: 20130424
  Transmission Date: 20140414
  Serious: Yes (Life-Threatening, Other)
  Sender: FDA-Public Use
  Company Number: BR-PFIZER INC-2012256547

PATIENT
  Age: 52 Year
  Sex: Female
  Weight: 58 kg

DRUGS (6)
  1. CHAMPIX [Suspect]
     Indication: TOBACCO USER
     Dosage: UNK
     Route: 048
     Dates: start: 20121001, end: 201210
  2. CHAMPIX [Suspect]
     Indication: SMOKING CESSATION THERAPY
     Dosage: ONE TABLET OF AN UNSPECIFIED DOSE, 2X/DAY
     Route: 048
     Dates: start: 201210, end: 20121016
  3. RIVOTRIL [Concomitant]
     Indication: ANXIETY
     Dosage: 2 MG, 1X/DAY (IN THE MORNING)
     Route: 048
     Dates: start: 2010
  4. RIVOTRIL [Concomitant]
     Indication: NERVOUSNESS
  5. CLONAZEPAM [Concomitant]
     Indication: RELAXATION THERAPY
     Dosage: HALF TABLET DAILY
  6. CLONAZEPAM [Concomitant]
     Indication: ANXIETY

REACTIONS (7)
  - Terminal state [Unknown]
  - Chest pain [Recovered/Resolved]
  - Headache [Recovered/Resolved]
  - Abdominal pain upper [Recovered/Resolved]
  - Stomatitis [Recovered/Resolved]
  - Nervousness [Recovered/Resolved]
  - Drug ineffective [Recovered/Resolved]
